FAERS Safety Report 15843431 (Version 1)
Quarter: 2019Q1

REPORT INFORMATION
  Report Type: Spontaneous
  Country: US (occurrence: US)
  Receive Date: 20190118
  Receipt Date: 20190118
  Transmission Date: 20190417
  Serious: Yes (Other)
  Sender: FDA-Public Use
  Company Number: US-GLENMARK PHARMACEUTICALS-2019GMK039234

PATIENT
  Age: 6 Year
  Sex: Male

DRUGS (3)
  1. BETAMETHASONE DIPROPIONATE. [Suspect]
     Active Substance: BETAMETHASONE DIPROPIONATE
     Indication: ECZEMA NUMMULAR
     Dosage: UNK
     Route: 061
  2. HYDROCORTISONE BUTYRATE. [Suspect]
     Active Substance: HYDROCORTISONE BUTYRATE
     Indication: ECZEMA NUMMULAR
     Dosage: UNK, BID (EVERY 12 HOURS)
     Route: 061
  3. TRIAMCINOLONE ACETONIDE CREAM USP [Suspect]
     Active Substance: TRIAMCINOLONE ACETONIDE
     Indication: ECZEMA NUMMULAR
     Dosage: UNK
     Route: 061

REACTIONS (4)
  - Drug dependence [Recovered/Resolved]
  - Perioral dermatitis [Recovered/Resolved]
  - Withdrawal syndrome [Recovered/Resolved]
  - Shared psychotic disorder [Recovered/Resolved]
